FAERS Safety Report 4505324-5 (Version None)
Quarter: 2004Q4

REPORT INFORMATION
  Report Type: 
  Country: None (occurrence: None)
  Receive Date: 20041015
  Receipt Date: 20040405
  Transmission Date: 20050328
  Serious: Yes (Hospitalization, Other)
  Sender: FDA-Public Use
  Company Number: 2004023142

PATIENT
  Age: 33 Year
  Sex: Male
  Weight: 129.2752 kg

DRUGS (1)
  1. NEURONTIN [Suspect]
     Indication: MENTAL DISORDER
     Dosage: 1800 MG (DAILY), ORAL
     Route: 048
     Dates: start: 19980101

REACTIONS (5)
  - OEDEMA [None]
  - PNEUMONIA VIRAL [None]
  - SCIATICA [None]
  - TOOTH INFECTION [None]
  - TOOTHACHE [None]
